FAERS Safety Report 11595729 (Version 1)
Quarter: 2015Q4

REPORT INFORMATION
  Report Type: Spontaneous
  Country: GB (occurrence: GB)
  Receive Date: 20151006
  Receipt Date: 20151006
  Transmission Date: 20160304
  Serious: Yes (Other)
  Sender: FDA-Public Use
  Company Number: GB-ACCORD-034032

PATIENT
  Age: 6 Decade
  Sex: Female
  Weight: 155 kg

DRUGS (8)
  1. LOSARTAN. [Concomitant]
     Active Substance: LOSARTAN
  2. CODEINE [Concomitant]
     Active Substance: CODEINE
  3. NEFOPAM [Concomitant]
     Active Substance: NEFOPAM
  4. AMOXICILLIN. [Concomitant]
     Active Substance: AMOXICILLIN
  5. AMITRIPTYLINE [Suspect]
     Active Substance: AMITRIPTYLINE
     Indication: RESTLESS LEGS SYNDROME
     Dosage: 1-2 DAILY
     Route: 048
     Dates: start: 2014, end: 2015
  6. AMLODIPINE [Concomitant]
     Active Substance: AMLODIPINE BESYLATE
  7. METFORMIN [Concomitant]
     Active Substance: METFORMIN HYDROCHLORIDE
  8. PARACETAMOL [Concomitant]
     Active Substance: ACETAMINOPHEN

REACTIONS (3)
  - Confusional state [Recovered/Resolved]
  - Off label use [Unknown]
  - Amnesia [Recovered/Resolved]

NARRATIVE: CASE EVENT DATE: 2014
